FAERS Safety Report 5098860-7 (Version None)
Quarter: 2006Q3

REPORT INFORMATION
  Report Type: 
  Country: None (occurrence: None)
  Receive Date: 20060907
  Receipt Date: 20060831
  Transmission Date: 20061208
  Serious: Yes (Hospitalization)
  Sender: FDA-Public Use
  Company Number: US-MERCK-0608USA07099M

PATIENT
  Age: 45 Year
  Sex: Female

DRUGS (1)
  1. COZAAR [Suspect]
     Indication: HYPERTENSION
     Route: 048

REACTIONS (8)
  - DRUG EXPOSURE DURING PREGNANCY [None]
  - FOETAL DISORDER [None]
  - HYPERCOAGULATION [None]
  - INDUCED LABOUR [None]
  - MATERNAL CONDITION AFFECTING FOETUS [None]
  - OLIGOHYDRAMNIOS [None]
  - RENAL FAILURE [None]
  - VENA CAVA THROMBOSIS [None]
